FAERS Safety Report 9171042 (Version 1)
Quarter: 2013Q1

REPORT INFORMATION
  Report Type: Spontaneous
  Country: US (occurrence: US)
  Receive Date: 20130319
  Receipt Date: 20130319
  Transmission Date: 20140127
  Serious: No
  Sender: FDA-Public Use
  Company Number: US-009507513-1210USA014052

PATIENT
  Sex: Female

DRUGS (1)
  1. MIRALAX [Suspect]
     Indication: DIVERTICULITIS
     Dosage: UNK, QD
     Route: 048

REACTIONS (5)
  - Haemorrhage [Not Recovered/Not Resolved]
  - Muscle spasms [Unknown]
  - Hypersensitivity [Unknown]
  - Incorrect drug administration duration [Unknown]
  - Off label use [Unknown]
